FAERS Safety Report 8538682-5 (Version None)
Quarter: 2012Q3

REPORT INFORMATION
  Report Type: 
  Country: None (occurrence: None)
  Receive Date: 20120726
  Receipt Date: 20120716
  Transmission Date: 20120928
  Serious: Yes (Hospitalization)
  Sender: FDA-Public Use
  Company Number: US-BAYER-2012-072209

PATIENT
  Age: 29 Year
  Sex: Female

DRUGS (2)
  1. POTASSIUM CHLORIDE [Concomitant]
     Indication: HYPOKALAEMIA
  2. YASMIN [Suspect]

REACTIONS (1)
  - PULMONARY EMBOLISM [None]
